FAERS Safety Report 8937113 (Version 1)
Quarter: 2012Q4

REPORT INFORMATION
  Report Type: Spontaneous
  Country: US (occurrence: None)
  Receive Date: 20121128
  Receipt Date: 20121128
  Transmission Date: 20130627
  Serious: Yes (Hospitalization)
  Sender: FDA-Public Use
  Company Number: None

PATIENT
  Age: 84 Year
  Sex: Male
  Weight: 54.43 kg

DRUGS (2)
  1. CYMBALTA [Suspect]
     Indication: DEPRESSION
     Route: 048
     Dates: start: 20121107, end: 20121119
  2. CELEXA [Suspect]
     Indication: DEPRESSION
     Route: 048
     Dates: start: 20121120, end: 20121122

REACTIONS (1)
  - Suicide attempt [None]
